FAERS Safety Report 17272569 (Version 1)
Quarter: 2020Q1

REPORT INFORMATION
  Report Type: Spontaneous
  Country: GB (occurrence: GB)
  Receive Date: 20200115
  Receipt Date: 20200115
  Transmission Date: 20200409
  Serious: Yes (Other)
  Sender: FDA-Public Use
  Company Number: GB-AMGEN-GBRSP2020003360

PATIENT
  Sex: Male

DRUGS (2)
  1. AZATHIOPRINE. [Concomitant]
     Active Substance: AZATHIOPRINE
  2. AMGEVITA [Suspect]
     Active Substance: ADALIMUMAB
     Indication: CROHN^S DISEASE
     Dosage: UNK, Q2WK
     Route: 065

REACTIONS (4)
  - Tooth fracture [Unknown]
  - Oroantral fistula [Unknown]
  - Tooth disorder [Unknown]
  - Surgical failure [Unknown]
